FAERS Safety Report 5768870-2 (Version None)
Quarter: 2008Q2

REPORT INFORMATION
  Report Type: 
  Country: None (occurrence: None)
  Receive Date: 20080610
  Receipt Date: 20080527
  Transmission Date: 20081010
  Serious: Yes (Other)
  Sender: FDA-Public Use
  Company Number: E3810-01912-SPO-FR

PATIENT
  Age: 31 Year
  Sex: Female

DRUGS (2)
  1. RABEPRAZOLE SODIUM [Suspect]
     Indication: GASTROOESOPHAGEAL REFLUX DISEASE
     Dosage: ORAL
     Route: 048
  2. TRIPTAN [Concomitant]

REACTIONS (2)
  - ARRHYTHMIA [None]
  - EXTRASYSTOLES [None]
